FAERS Safety Report 26001151 (Version 3)
Quarter: 2025Q4

REPORT INFORMATION
  Report Type: Report from Study
  Country: US (occurrence: US)
  Receive Date: 20251105
  Receipt Date: 20251212
  Transmission Date: 20260118
  Serious: No
  Sender: MALLINCKRODT
  Company Number: US-MALLINCKRODT-MNK202506829

PATIENT
  Sex: Female
  Weight: 259 kg

DRUGS (3)
  1. CORTICOTROPIN [Suspect]
     Active Substance: CORTICOTROPIN
     Indication: Systemic lupus erythematosus
     Dosage: 80 UNITS
     Route: 058
     Dates: start: 20251029
  2. BENADRYL [Suspect]
     Active Substance: DIPHENHYDRAMINE HYDROCHLORIDE
     Indication: Hypersensitivity
     Dosage: UNKNOWN
  3. CAFFEINE [Concomitant]
     Active Substance: CAFFEINE
     Dosage: UNKNOWN

REACTIONS (4)
  - Somnolence [Recovered/Resolved]
  - Asthenia [Unknown]
  - Injection site pruritus [Unknown]
  - Fatigue [Unknown]
